FAERS Safety Report 6153928-9 (Version None)
Quarter: 2009Q2

REPORT INFORMATION
  Report Type: 
  Country: None (occurrence: None)
  Receive Date: 20090409
  Receipt Date: 20090409
  Transmission Date: 20091009
  Serious: Yes (Hospitalization)
  Sender: FDA-Public Use
  Company Number: None

PATIENT
  Sex: Female
  Weight: 66.3 kg

DRUGS (18)
  1. CARBOPLATIN [Suspect]
     Dosage: 636 MG
  2. TAXOL [Suspect]
     Dosage: 230 MG
  3. ALBUTEROL [Concomitant]
  4. COMBIVENT [Concomitant]
  5. DICYCLOMINE [Concomitant]
  6. DOCUSATE SODIUM [Concomitant]
  7. GABAPENTIN [Concomitant]
  8. HYDROXYZPAM [Concomitant]
  9. LANTUS [Concomitant]
  10. LONOX [Concomitant]
  11. LOPERAMIDE HCL [Concomitant]
  12. LORCET-HD [Concomitant]
  13. MAXALT [Concomitant]
  14. METFORMIN HCL [Concomitant]
  15. PHENERGAN [Concomitant]
  16. REQUIP [Concomitant]
  17. SIMVASTIN [Concomitant]
  18. XANAX [Concomitant]

REACTIONS (4)
  - ANAEMIA [None]
  - CHEST PAIN [None]
  - PNEUMONIA [None]
  - TACHYCARDIA [None]
